FAERS Safety Report 16660311 (Version 2)
Quarter: 2019Q4

REPORT INFORMATION
  Report Type: Report from Study
  Country: None (occurrence: US)
  Receive Date: 20190802
  Receipt Date: 20191111
  Transmission Date: 20200122
  Serious: Yes (Hospitalization, Other)
  Sender: FDA-Public Use
  Company Number: US-ABBVIE-19K-163-2829470-00

PATIENT
  Age: 72 Year
  Sex: Female
  Weight: 99.88 kg

DRUGS (2)
  1. XARELTO [Suspect]
     Active Substance: RIVAROXABAN
     Indication: ANTICOAGULANT THERAPY
     Route: 065
     Dates: start: 20190426
  2. HUMIRA [Suspect]
     Active Substance: ADALIMUMAB
     Indication: RHEUMATOID ARTHRITIS
     Dosage: CITRATE FREE
     Route: 058
     Dates: start: 2017

REACTIONS (5)
  - Peripheral nerve neurostimulation [Unknown]
  - Thrombosis [Recovering/Resolving]
  - Bladder dysfunction [Unknown]
  - Pulmonary thrombosis [Unknown]
  - Injection site pain [Recovered/Resolved]

NARRATIVE: CASE EVENT DATE: 20190504
